FAERS Safety Report 5060468-7 (Version None)
Quarter: 2006Q2

REPORT INFORMATION
  Report Type: 
  Country: None (occurrence: None)
  Receive Date: 20060630
  Receipt Date: 20050812
  Transmission Date: 20061013
  Serious: Yes (Other)
  Sender: FDA-Public Use
  Company Number: OMPQ-PR-0507S-0896

PATIENT
  Sex: Female

DRUGS (2)
  1. OMNIPAQUE 140 [Suspect]
     Indication: DRUG USE FOR UNKNOWN INDICATION
     Dosage: , SINGLE DOSE, I.A.
     Route: 013
     Dates: start: 20050601, end: 20050601
  2. VISIPAQUE [Suspect]
     Indication: DRUG USE FOR UNKNOWN INDICATION
     Dosage: , SINGLE DOSE, I.A.
     Dates: start: 20050601, end: 20050601

REACTIONS (1)
  - VENTRICULAR FIBRILLATION [None]
